FAERS Safety Report 20496327 (Version 1)
Quarter: 2022Q1

REPORT INFORMATION
  Report Type: Spontaneous
  Country: US (occurrence: US)
  Receive Date: 20220221
  Receipt Date: 20220221
  Transmission Date: 20220424
  Serious: Yes (Other)
  Sender: FDA-Public Use
  Company Number: US-NOVARTISPH-NVSC2022US038133

PATIENT

DRUGS (1)
  1. KYMRIAH [Suspect]
     Active Substance: TISAGENLECLEUCEL
     Indication: Product used for unknown indication
     Dosage: UNK, ONCE/SINGLE (ONE SINGLE DOSE, VIABLE CAR T CELLS)
     Route: 065

REACTIONS (2)
  - Post-depletion B-cell recovery [Unknown]
  - Disease progression [Unknown]
